FAERS Safety Report 11930572 (Version 1)
Quarter: 2016Q1

REPORT INFORMATION
  Report Type: Spontaneous
  Country: CN (occurrence: CN)
  Receive Date: 20160120
  Receipt Date: 20160120
  Transmission Date: 20160526
  Serious: Yes (Hospitalization)
  Sender: FDA-Public Use
  Company Number: CN-SA-2016SA007237

PATIENT
  Age: 57 Year
  Sex: Male
  Weight: 65 kg

DRUGS (2)
  1. CAPECITABINE. [Suspect]
     Active Substance: CAPECITABINE
     Indication: COLON CANCER
     Dosage: FOR TWO WEEKS
     Route: 048
     Dates: start: 20150616, end: 20150630
  2. ELOXATIN [Suspect]
     Active Substance: OXALIPLATIN
     Indication: COLON CANCER
     Route: 041
     Dates: start: 20150616, end: 20150616

REACTIONS (7)
  - Pain in extremity [Unknown]
  - Asthenia [Unknown]
  - Aspartate aminotransferase increased [Recovered/Resolved]
  - Hepatic function abnormal [Recovered/Resolved]
  - Chromaturia [Unknown]
  - Alanine aminotransferase increased [Recovered/Resolved]
  - Drug-induced liver injury [Recovered/Resolved]

NARRATIVE: CASE EVENT DATE: 20150626
